FAERS Safety Report 6312424-6 (Version None)
Quarter: 2009Q3

REPORT INFORMATION
  Report Type: 
  Country: None (occurrence: None)
  Receive Date: 20090813
  Receipt Date: 20090728
  Transmission Date: 20100115
  Serious: Yes (Disabling)
  Sender: FDA-Public Use
  Company Number: 2009-0193

PATIENT
  Age: 37 Year
  Sex: Female

DRUGS (1)
  1. DYSPORT [Suspect]
     Indication: MUSCLE SPASTICITY
     Dosage: ONE CYCLE
     Route: 030
     Dates: start: 20081118, end: 20081118

REACTIONS (7)
  - ASTHENIA [None]
  - DIPLOPIA [None]
  - DYSPHAGIA [None]
  - MUSCULAR WEAKNESS [None]
  - PAIN IN EXTREMITY [None]
  - URINARY INCONTINENCE [None]
  - WEIGHT DECREASED [None]
